FAERS Safety Report 6618260-5 (Version None)
Quarter: 2010Q1

REPORT INFORMATION
  Report Type: 
  Country: None (occurrence: None)
  Receive Date: 20100308
  Receipt Date: 20100226
  Transmission Date: 20100710
  Serious: Yes (Death)
  Sender: FDA-Public Use
  Company Number: JP-ABBOTT-10P-087-0625529-00

PATIENT
  Age: 82 Year
  Sex: Male

DRUGS (8)
  1. LEUPROLIDE ACETATE [Suspect]
     Indication: PROSTATE CANCER STAGE II
     Route: 058
     Dates: start: 20060404, end: 20071113
  2. BICALUTAMIDE [Concomitant]
     Indication: PROSTATE CANCER STAGE II
     Route: 048
     Dates: start: 20060207
  3. DEPAS [Concomitant]
     Indication: INSOMNIA
     Route: 048
     Dates: start: 20070123
  4. DIGOSIN [Concomitant]
     Indication: CARDIAC FAILURE
     Route: 048
     Dates: start: 20070417
  5. ITOROL [Concomitant]
     Indication: CARDIAC FAILURE
     Route: 048
     Dates: start: 20070417
  6. SIGMART [Concomitant]
     Indication: CARDIAC FAILURE
     Route: 048
     Dates: start: 20070417
  7. LASIX [Concomitant]
     Indication: CARDIAC FAILURE
     Route: 048
     Dates: start: 20070417
  8. WARFARIN SODIUM [Concomitant]
     Indication: ATRIAL FIBRILLATION
     Route: 048
     Dates: start: 20070417

REACTIONS (1)
  - CARDIAC FAILURE [None]
